FAERS Safety Report 21948292 (Version 1)
Quarter: 2023Q1

REPORT INFORMATION
  Report Type: Spontaneous
  Country: DE (occurrence: DE)
  Receive Date: 20230203
  Receipt Date: 20230203
  Transmission Date: 20230417
  Serious: Yes (Hospitalization, Other)
  Sender: FDA-Public Use
  Company Number: DE-BAYER-2023A011280

PATIENT
  Age: 58 Year
  Sex: Male
  Weight: 96 kg

DRUGS (1)
  1. XARELTO [Suspect]
     Active Substance: RIVAROXABAN
     Indication: Cardiac fibrillation
     Dosage: 15 MG, QD
     Route: 048
     Dates: start: 202207, end: 20221017

REACTIONS (5)
  - Anaemia [Recovering/Resolving]
  - Hypotension [Recovered/Resolved]
  - Gastrointestinal haemorrhage [Recovering/Resolving]
  - Chronic kidney disease [Recovered/Resolved]
  - Haemorrhage [Unknown]

NARRATIVE: CASE EVENT DATE: 20220810
